FAERS Safety Report 5542813-9 (Version None)
Quarter: 2007Q4

REPORT INFORMATION
  Report Type: 
  Country: None (occurrence: None)
  Receive Date: 20071123
  Receipt Date: 20070212
  Transmission Date: 20080405
  Serious: Yes (Other)
  Sender: FDA-Public Use
  Company Number: US-JNJFOC-20070202972

PATIENT
  Age: 59 Year
  Sex: Male

DRUGS (6)
  1. LEVAQUIN [Suspect]
     Indication: PERINEAL PAIN
     Dosage: 500 MG, ORAL
     Route: 048
     Dates: start: 20070201
  2. HYDROCODONE (HYDROCODONE) UNSPECIFIED [Concomitant]
  3. ACTOS (PIOGLITAZONE) UNSPECIFIED [Concomitant]
  4. AMBIEN (ZOLPIDEM TARTRATE) UNSPECIFIED [Concomitant]
  5. AVAPRO (IRBESARTAN) UNSPECIFIED [Concomitant]
  6. LIPITOR (ATORVASTATIN) UNSPECIFIED [Concomitant]

REACTIONS (1)
  - COGNITIVE DISORDER [None]
